FAERS Safety Report 8428020-0 (Version None)
Quarter: 2012Q2

REPORT INFORMATION
  Report Type: 
  Country: None (occurrence: None)
  Receive Date: 20120611
  Receipt Date: 20120604
  Transmission Date: 20120825
  Serious: Yes (Other)
  Sender: FDA-Public Use
  Company Number: US-JNJFOC-20110605577

PATIENT

DRUGS (3)
  1. LEVAQUIN [Suspect]
     Indication: SINUSITIS
     Route: 065
     Dates: start: 20110328
  2. LEVAQUIN [Suspect]
     Route: 065
     Dates: start: 20110418
  3. LEVAQUIN [Suspect]
     Route: 065
     Dates: start: 20110323

REACTIONS (3)
  - SYNOVIAL CYST [None]
  - MENISCUS LESION [None]
  - ARTHRALGIA [None]
